FAERS Safety Report 21290317 (Version 2)
Quarter: 2022Q4

REPORT INFORMATION
  Report Type: Spontaneous
  Country: US (occurrence: US)
  Receive Date: 20220902
  Receipt Date: 20221206
  Transmission Date: 20230112
  Serious: Yes (Other)
  Sender: FDA-Public Use
  Company Number: US-009507513-2209USA001000

PATIENT
  Age: 67 Year
  Sex: Female

DRUGS (1)
  1. KEYTRUDA [Suspect]
     Active Substance: PEMBROLIZUMAB
     Indication: Squamous cell carcinoma of lung
     Dosage: 200 MILLIGRAM, ONCE

REACTIONS (1)
  - Anti-neutrophil cytoplasmic antibody positive vasculitis [Recovering/Resolving]
